FAERS Safety Report 12445396 (Version 1)
Quarter: 2016Q2

REPORT INFORMATION
  Report Type: Spontaneous
  Country: US (occurrence: US)
  Receive Date: 20160608
  Receipt Date: 20160608
  Transmission Date: 20160815
  Serious: No
  Sender: FDA-Public Use
  Company Number: US-ASTRAZENECA-2016SE48232

PATIENT
  Age: 76 Year
  Sex: Female

DRUGS (1)
  1. BYDUREON [Suspect]
     Active Substance: EXENATIDE
     Route: 058
     Dates: start: 20160310, end: 20160426

REACTIONS (2)
  - Nodule [Unknown]
  - Pruritus [Unknown]

NARRATIVE: CASE EVENT DATE: 2016
